FAERS Safety Report 24667293 (Version 1)
Quarter: 2024Q4

REPORT INFORMATION
  Report Type: Spontaneous
  Country: IT (occurrence: IT)
  Receive Date: 20241126
  Receipt Date: 20241126
  Transmission Date: 20250115
  Serious: Yes (Other)
  Sender: LUNDBECK
  Company Number: IT-LUNDBECK-DKLU4007335

PATIENT

DRUGS (2)
  1. VYEPTI [Suspect]
     Active Substance: EPTINEZUMAB-JJMR
     Indication: Product used for unknown indication
     Route: 041
     Dates: start: 20240930
  2. MESALAMINE [Concomitant]
     Active Substance: MESALAMINE
     Indication: Crohn^s disease

REACTIONS (4)
  - Crohn^s disease [Not Recovered/Not Resolved]
  - Fatigue [Unknown]
  - Pharyngeal paraesthesia [Unknown]
  - Nausea [Unknown]

NARRATIVE: CASE EVENT DATE: 20241001
